FAERS Safety Report 8971380 (Version 6)
Quarter: 2013Q3

REPORT INFORMATION
  Report Type: Spontaneous
  Country: US (occurrence: US)
  Receive Date: 20121217
  Receipt Date: 20130828
  Transmission Date: 20140515
  Serious: Yes (Other)
  Sender: FDA-Public Use
  Company Number: US-B.I. PHARMACEUTICALS,INC./RIDGEFIELD-2012-BI-02929BP

PATIENT
  Sex: Male
  Weight: 158.76 kg

DRUGS (11)
  1. PRADAXA [Suspect]
     Indication: ATRIAL FIBRILLATION
     Dosage: 300 MG
     Route: 048
     Dates: start: 20110405, end: 20120126
  2. PRADAXA [Suspect]
     Indication: ANTICOAGULANT THERAPY
  3. METOPROLOL [Concomitant]
     Dosage: 100 MG
     Route: 048
  4. ASPIRIN [Concomitant]
     Dosage: 81 MG
     Route: 048
  5. KLOR-CON [Concomitant]
     Dosage: 20 MEQ
     Route: 048
  6. LISINOPRIL [Concomitant]
     Dosage: 10 MG
     Route: 048
  7. BUMEX [Concomitant]
     Dosage: 10 MG
     Route: 048
  8. GABAPENTIN [Concomitant]
     Dosage: 1200 MG
     Route: 048
  9. ULORIC [Concomitant]
     Dosage: 40 MG
     Route: 048
  10. SPIRONOLACTONE [Concomitant]
     Dosage: 100 MG
     Route: 048
  11. DIGOXIN [Concomitant]
     Dosage: 0.25 MG
     Route: 048

REACTIONS (2)
  - Gastrointestinal haemorrhage [Unknown]
  - Haemorrhoidal haemorrhage [Unknown]
